FAERS Safety Report 14708186 (Version 9)
Quarter: 2019Q4

REPORT INFORMATION
  Report Type: Report from Study
  Country: CA (occurrence: CA)
  Receive Date: 20180403
  Receipt Date: 20191021
  Transmission Date: 20200122
  Serious: Yes (Hospitalization, Other)
  Sender: FDA-Public Use
  Company Number: PHHY2010CA31063

PATIENT
  Age: 62 Year
  Sex: Male

DRUGS (19)
  1. FOSINOPRIL [Concomitant]
     Active Substance: FOSINOPRIL
     Dosage: 20 MG, QD
     Route: 065
  2. LEVEMIR [Concomitant]
     Active Substance: INSULIN DETEMIR
     Indication: PRODUCT USED FOR UNKNOWN INDICATION
     Dosage: 32 U, QHS
     Route: 058
  3. CRESTOR [Concomitant]
     Active Substance: ROSUVASTATIN CALCIUM
     Indication: PRODUCT USED FOR UNKNOWN INDICATION
     Dosage: 40 OT, QHS
     Route: 048
  4. TEVA ROSUVASTATIN [Concomitant]
     Indication: PRODUCT USED FOR UNKNOWN INDICATION
     Dosage: 40 MG, QD
     Route: 065
  5. SANDOSTATIN LAR DEPOT [Suspect]
     Active Substance: OCTREOTIDE ACETATE
     Dosage: 30 MG, QMO
     Route: 030
  6. METFORMIN [Concomitant]
     Active Substance: METFORMIN HYDROCHLORIDE
     Dosage: 250 MG, QD
     Route: 065
     Dates: start: 2019, end: 2019
  7. SANDOSTATIN LAR DEPOT [Suspect]
     Active Substance: OCTREOTIDE ACETATE
     Dosage: 30 MG, QMO
     Route: 030
  8. METFORMIN [Concomitant]
     Active Substance: METFORMIN HYDROCHLORIDE
     Indication: PRODUCT USED FOR UNKNOWN INDICATION
     Dosage: UNK
     Route: 065
  9. TRESIBA [Concomitant]
     Active Substance: INSULIN DEGLUDEC
     Indication: PRODUCT USED FOR UNKNOWN INDICATION
     Dosage: 30 U, QD
     Route: 058
  10. SANDOSTATIN LAR DEPOT [Suspect]
     Active Substance: OCTREOTIDE ACETATE
     Dosage: 30 MG, QMO (EVERY 4 WEEKS)
     Route: 030
  11. NOVORAPID [Concomitant]
     Active Substance: INSULIN ASPART
     Indication: PRODUCT USED FOR UNKNOWN INDICATION
     Dosage: 14 TO 16 U, Q MEAL
     Route: 058
  12. METFORMIN [Concomitant]
     Active Substance: METFORMIN HYDROCHLORIDE
     Dosage: 500 UNK
     Route: 065
  13. VITAMIN D [Concomitant]
     Active Substance: VITAMIN D NOS
     Indication: PRODUCT USED FOR UNKNOWN INDICATION
     Dosage: 10000 UI QW
     Route: 065
  14. SANDOSTATIN LAR DEPOT [Suspect]
     Active Substance: OCTREOTIDE ACETATE
     Dosage: 30 MG, QMO
     Route: 030
     Dates: start: 20190219
  15. METFORMIN [Concomitant]
     Active Substance: METFORMIN HYDROCHLORIDE
     Dosage: 850 MG, BID
     Route: 065
  16. SANDOSTATIN LAR DEPOT [Suspect]
     Active Substance: OCTREOTIDE ACETATE
     Indication: ACROMEGALY
     Dosage: 30 MG, QMO (EVERY 4 WEEKS, ONCE A MONTH)
     Route: 030
     Dates: start: 20050415
  17. LAMISIL [Concomitant]
     Active Substance: TERBINAFINE HYDROCHLORIDE
     Indication: PRODUCT USED FOR UNKNOWN INDICATION
     Dosage: 1 %, BID
     Route: 061
  18. NOVORAPID [Concomitant]
     Active Substance: INSULIN ASPART
     Dosage: 28-28-24 TID
     Route: 065
     Dates: start: 20180720
  19. FOSINOPRIL [Concomitant]
     Active Substance: FOSINOPRIL
     Indication: PRODUCT USED FOR UNKNOWN INDICATION
     Dosage: 10 MG, QD
     Route: 048

REACTIONS (26)
  - Blood pressure increased [Unknown]
  - Nasopharyngitis [Unknown]
  - Blood testosterone decreased [Unknown]
  - Abdominal pain upper [Recovered/Resolved]
  - Nephrolithiasis [Unknown]
  - Pain in extremity [Unknown]
  - Phlebitis [Unknown]
  - Abdominal pain [Recovering/Resolving]
  - Fatigue [Unknown]
  - Blood pressure systolic increased [Unknown]
  - Blood pressure decreased [Unknown]
  - Arthralgia [Unknown]
  - Wound [Recovering/Resolving]
  - Diverticulitis [Unknown]
  - Emotional disorder [Unknown]
  - Anxiety [Unknown]
  - Oropharyngeal pain [Not Recovered/Not Resolved]
  - Body temperature decreased [Unknown]
  - Influenza [Recovering/Resolving]
  - Cough [Unknown]
  - Diarrhoea [Recovering/Resolving]
  - Dizziness [Unknown]
  - Needle issue [Unknown]
  - Urinary tract infection bacterial [Unknown]
  - Gastritis [Unknown]
  - Depression [Unknown]

NARRATIVE: CASE EVENT DATE: 2015
